FAERS Safety Report 20325488 (Version 3)
Quarter: 2022Q1

REPORT INFORMATION
  Report Type: Spontaneous
  Country: US (occurrence: US)
  Receive Date: 20220112
  Receipt Date: 20220114
  Transmission Date: 20220423
  Serious: Yes (Other)
  Sender: FDA-Public Use
  Company Number: CID000000000021124

PATIENT
  Sex: Female

DRUGS (3)
  1. WARFARIN SODIUM [Suspect]
     Active Substance: WARFARIN SODIUM
     Indication: Cardiac operation
     Dosage: 10 YEARS AGO
     Route: 065
     Dates: start: 2012
  2. WARFARIN SODIUM [Suspect]
     Active Substance: WARFARIN SODIUM
     Indication: Cardiac failure
  3. WARFARIN SODIUM [Suspect]
     Active Substance: WARFARIN SODIUM
     Indication: Thrombosis

REACTIONS (1)
  - International normalised ratio increased [Unknown]

NARRATIVE: CASE EVENT DATE: 20210101
